FAERS Safety Report 14652905 (Version 1)
Quarter: 2018Q1

REPORT INFORMATION
  Report Type: Spontaneous
  Country: US (occurrence: US)
  Receive Date: 20180319
  Receipt Date: 20180319
  Transmission Date: 20180509
  Serious: No
  Sender: FDA-Public Use
  Company Number: US-AUROBINDO-AUR-APL-2017-43700

PATIENT
  Sex: Female
  Weight: 77.1 kg

DRUGS (2)
  1. LAMOTRIGINE TABLET [Suspect]
     Active Substance: LAMOTRIGINE
     Indication: BIPOLAR DISORDER
     Dosage: 200 MG, DAILY
     Route: 048
     Dates: start: 201608
  2. LAMOTRIGINE TABLET [Suspect]
     Active Substance: LAMOTRIGINE
     Dosage: TAPER DOWN TO CUT TABLETS 3/4 TH THEN 1/2 AND THEN TO 1/4 TH

REACTIONS (3)
  - Therapy change [Unknown]
  - Tachyphrenia [Not Recovered/Not Resolved]
  - Palpitations [Not Recovered/Not Resolved]
